FAERS Safety Report 14881382 (Version 1)
Quarter: 2018Q2

REPORT INFORMATION
  Report Type: Spontaneous
  Country: US (occurrence: US)
  Receive Date: 20180511
  Receipt Date: 20180511
  Transmission Date: 20180711
  Serious: Yes (Death, Hospitalization, Other)
  Sender: FDA-Public Use
  Company Number: US-PFIZER INC-2018194029

PATIENT
  Age: 65 Year
  Sex: Female
  Weight: 54 kg

DRUGS (5)
  1. OXYCODONE [Concomitant]
     Active Substance: OXYCODONE
     Dosage: 10 MG
     Route: 048
  2. VITAMIN D [Concomitant]
     Active Substance: CHOLECALCIFEROL
     Dosage: UNK
  3. OXYCODONE [Concomitant]
     Active Substance: OXYCODONE
     Indication: PAIN
     Dosage: 5 MG
     Route: 048
  4. IBRANCE [Suspect]
     Active Substance: PALBOCICLIB
     Indication: BREAST CANCER METASTATIC
     Dosage: 125 MG, 1X/DAY
     Route: 048
     Dates: start: 201712, end: 201802
  5. VALIUM [Concomitant]
     Active Substance: DIAZEPAM
     Indication: PAIN
     Dosage: AS NEEDED

REACTIONS (7)
  - Death [Fatal]
  - Foreign body in respiratory tract [Unknown]
  - Dysphagia [Unknown]
  - Nutritional condition abnormal [Unknown]
  - Dehydration [Unknown]
  - Superior vena cava syndrome [Unknown]
  - Thrombosis [Unknown]

NARRATIVE: CASE EVENT DATE: 201712
